FAERS Safety Report 15301583 (Version 1)
Quarter: 2018Q3

REPORT INFORMATION
  Report Type: Spontaneous
  Country: DE (occurrence: DE)
  Receive Date: 20180821
  Receipt Date: 20180821
  Transmission Date: 20181010
  Serious: Yes (Other)
  Sender: FDA-Public Use
  Company Number: DE-TEVA-2018-DE-946888

PATIENT
  Age: 71 Year
  Sex: Male

DRUGS (1)
  1. TERBINAFIN [Suspect]
     Active Substance: TERBINAFINE
     Route: 065

REACTIONS (1)
  - Electrocardiogram QT interval abnormal [Unknown]
